FAERS Safety Report 11294595 (Version 1)
Quarter: 2015Q2

REPORT INFORMATION
  Report Type: Spontaneous
  Country: US (occurrence: None)
  Receive Date: 20150623
  Receipt Date: 20150623
  Transmission Date: 20150821
  Serious: Yes (Other)
  Sender: FDA-Public Use
  Company Number: RB-69792-2014

PATIENT
  Age: 23 Year
  Sex: Female

DRUGS (1)
  1. MUCINEX DM [Suspect]
     Active Substance: DEXTROMETHORPHAN HYDROBROMIDE\GUAIFENESIN
     Indication: PRODUCT USED FOR UNKNOWN INDICATION
     Dosage: CONSUMER LAST USED THE PRODUCT ON 22-OCT-2014
     Dates: start: 20141022

REACTIONS (10)
  - Feeling abnormal [None]
  - Dyskinesia [None]
  - Restlessness [None]
  - Nausea [None]
  - Dizziness [None]
  - Tremor [None]
  - Muscle disorder [None]
  - Hypoaesthesia [None]
  - Muscle twitching [None]
  - Abdominal pain upper [None]

NARRATIVE: CASE EVENT DATE: 20141022
